FAERS Safety Report 5411320-6 (Version None)
Quarter: 2007Q3

REPORT INFORMATION
  Report Type: 
  Country: None (occurrence: None)
  Receive Date: 20070810
  Receipt Date: 20070731
  Transmission Date: 20080115
  Serious: Yes (Hospitalization)
  Sender: FDA-Public Use
  Company Number: US-SANOFI-SYNTHELABO-A03200704937

PATIENT
  Sex: Female

DRUGS (1)
  1. AMBIEN CR [Suspect]
     Indication: INSOMNIA
     Dosage: UNK
     Route: 048
     Dates: start: 20051201

REACTIONS (9)
  - AMNESIA [None]
  - DISORIENTATION [None]
  - DRUG INEFFECTIVE [None]
  - DRUG TOLERANCE INCREASED [None]
  - IMPAIRED DRIVING ABILITY [None]
  - INJURY [None]
  - LOSS OF CONSCIOUSNESS [None]
  - OVERDOSE [None]
  - ROAD TRAFFIC ACCIDENT [None]
